FAERS Safety Report 4757944-0 (Version None)
Quarter: 2005Q3

REPORT INFORMATION
  Report Type: 
  Country: None (occurrence: None)
  Receive Date: 20050830
  Receipt Date: 20050818
  Transmission Date: 20060218
  Serious: Yes (Hospitalization, Other)
  Sender: FDA-Public Use
  Company Number: HQWYE016019AUG05

PATIENT
  Age: 46 Year
  Sex: Female

DRUGS (13)
  1. PROTONIX [Suspect]
     Dosage: 40 MG 1X PER 1 DAY, ORAL
     Route: 048
  2. ADVIL [Concomitant]
  3. BENADRYL [Concomitant]
  4. HYDROCHLOROTHIAZIDE [Concomitant]
  5. HYDROPROTESTERONE (HYDROPROGESTERONE) [Concomitant]
  6. ULTRAM (TAAMADOL HYDROCHLORIDE) [Concomitant]
  7. TTAZADONE (TRAZADONE) [Concomitant]
  8. WELLBUTRIN XL [Concomitant]
  9. METFORMIN HCL [Concomitant]
  10. EFFEXOR XR [Concomitant]
  11. SIMVASTATIN [Concomitant]
  12. AVANDIA (ROSIGLITAZONE MEALETAE) [Concomitant]
  13. LISINOPRIL [Concomitant]

REACTIONS (5)
  - ALANINE AMINOTRANSFERASE INCREASED [None]
  - ASPARTATE AMINOTRANSFERASE INCREASED [None]
  - BLOOD LACTATE DEHYDROGENASE INCREASED [None]
  - HAEMOLYTIC ANAEMIA [None]
  - JAUNDICE [None]
